FAERS Safety Report 9182946 (Version 1)
Quarter: 2012Q4

REPORT INFORMATION
  Report Type: 
  Country: NL (occurrence: NL)
  Receive Date: 20121031
  Receipt Date: 20121031
  Transmission Date: 20130627
  Serious: Yes (Death, Other)
  Sender: FDA-Public Use
  Company Number: PHHY2012NL094793

PATIENT
  Age: 54 None
  Sex: Male

DRUGS (2)
  1. ZOMETA [Suspect]
     Indication: LUNG CANCER METASTATIC
     Dosage: 4mg/100ml once per 21 days
  2. ZOMETA [Suspect]
     Dosage: 4mg/100ml once per 21 days
     Dates: start: 20121018

REACTIONS (3)
  - Death [Fatal]
  - Neoplasm progression [Unknown]
  - Metastases to liver [Unknown]
